FAERS Safety Report 11467473 (Version 1)
Quarter: 2015Q3

REPORT INFORMATION
  Report Type: Spontaneous
  Country: IN (occurrence: IN)
  Receive Date: 20150908
  Receipt Date: 20150908
  Transmission Date: 20151125
  Serious: No
  Sender: FDA-Public Use
  Company Number: IN-LUPIN PHARMACEUTICALS INC.-E2B_00004083

PATIENT
  Age: 28 Year
  Sex: Male

DRUGS (4)
  1. BENADON [Suspect]
     Active Substance: PYRIDOXINE HYDROCHLORIDE
     Indication: TUBERCULOSIS
     Route: 048
     Dates: start: 20150528
  2. SOLONEX [Suspect]
     Active Substance: ISONIAZID
     Indication: TUBERCULOSIS
     Route: 048
     Dates: start: 20150528
  3. COMBUTOL [Suspect]
     Active Substance: ETHAMBUTOL HYDROCHLORIDE
     Indication: TUBERCULOSIS
     Route: 048
     Dates: start: 20150528
  4. R-CIN 600 [Suspect]
     Active Substance: RIFAMPIN
     Indication: TUBERCULOSIS
     Route: 048
     Dates: start: 20150528

REACTIONS (1)
  - Arthralgia [Not Recovered/Not Resolved]

NARRATIVE: CASE EVENT DATE: 20150716
